FAERS Safety Report 6464342-0 (Version None)
Quarter: 2009Q4

REPORT INFORMATION
  Report Type: 
  Country: None (occurrence: None)
  Receive Date: 20091201
  Receipt Date: 20091118
  Transmission Date: 20100525
  Serious: Yes (Other)
  Sender: FDA-Public Use
  Company Number: BE-ELI_LILLY_AND_COMPANY-BE200910000112

PATIENT
  Age: 40 Year
  Sex: Male
  Weight: 68.5 kg

DRUGS (2)
  1. CYMBALTA [Suspect]
     Indication: ANXIETY
     Dosage: 60 MG, DAILY (1/D)
     Route: 048
     Dates: start: 20090301, end: 20090928
  2. TRAZOLAN [Concomitant]
     Dosage: 100 MG 1.5 DAILY (1/D)
     Route: 048
     Dates: start: 20060101

REACTIONS (1)
  - CUTANEOUS VASCULITIS [None]
